FAERS Safety Report 7238550-5 (Version None)
Quarter: 2011Q1

REPORT INFORMATION
  Report Type: 
  Country: None (occurrence: None)
  Receive Date: 20110121
  Receipt Date: 20110114
  Transmission Date: 20110831
  Serious: Yes (Hospitalization, Other)
  Sender: FDA-Public Use
  Company Number: US-JNJFOC-20110104346

PATIENT
  Sex: Female
  Weight: 56.7 kg

DRUGS (7)
  1. FENTANYL-100 [Suspect]
     Indication: PAIN
     Dosage: NDC 0781-7243-55
     Route: 062
  2. PRILOSEC [Concomitant]
     Indication: CROHN'S DISEASE
     Route: 048
  3. ZOFRAN [Concomitant]
     Indication: CROHN'S DISEASE
     Route: 048
  4. UNSPECIFIED FENTANYL [Suspect]
     Indication: PRODUCT USED FOR UNKNOWN INDICATION
     Route: 062
  5. MORPHINE SULFATE [Concomitant]
     Indication: PAIN
     Route: 048
  6. LIALDA [Concomitant]
     Indication: CROHN'S DISEASE
     Route: 048
  7. HUMIRA [Concomitant]
     Indication: CROHN'S DISEASE
     Route: 058

REACTIONS (6)
  - PRODUCT ADHESION ISSUE [None]
  - BREAST ABSCESS [None]
  - CHILLS [None]
  - DEVICE RELATED INFECTION [None]
  - WRONG TECHNIQUE IN DRUG USAGE PROCESS [None]
  - PYREXIA [None]
